FAERS Safety Report 4706473-9 (Version None)
Quarter: 2005Q3

REPORT INFORMATION
  Report Type: 
  Country: None (occurrence: None)
  Receive Date: 20050705
  Receipt Date: 20050516
  Transmission Date: 20060218
  Serious: Yes (Disabling)
  Sender: FDA-Public Use
  Company Number: M26149

PATIENT
  Age: 56 Year
  Sex: Female
  Weight: 88.9 kg

DRUGS (14)
  1. AMOXICILLIN TRIHYDRATE + POTASSIUM CLAVULANATE [Suspect]
     Dosage: 6.25MG THREE TIMES PER DAY
     Route: 048
     Dates: start: 20050404, end: 20050421
  2. CIPROFLOXACIN [Suspect]
     Dosage: 750MG TWICE PER DAY
     Route: 065
     Dates: start: 20050329, end: 20050417
  3. AMILORIDE HCL [Concomitant]
     Dosage: 5MG IN THE MORNING
     Route: 048
  4. CALCICHEW D3 FORTE [Concomitant]
     Dosage: 1TAB TWICE PER DAY
  5. GLIMEPIRIDE [Concomitant]
     Dosage: 3MG PER DAY
  6. ATROVENT [Concomitant]
     Dosage: 400MCG FOUR TIMES PER DAY
  7. PULMICORT [Concomitant]
     Dosage: 1MG FOUR TIMES PER DAY
  8. ACETAMINOPHEN W/ CODEINE [Concomitant]
     Route: 048
  9. FUROSEMIDE [Concomitant]
     Dosage: 40MG IN THE MORNING
  10. SALBUTAMOL [Concomitant]
  11. LANSOPRAZOLE [Concomitant]
     Dosage: 15MG PER DAY
  12. PREDNISOLONE [Concomitant]
  13. METOCLOPRAMIDE [Concomitant]
     Dosage: 10MG THREE TIMES PER DAY
  14. INSULATARD [Concomitant]

REACTIONS (3)
  - ABASIA [None]
  - ARTHRALGIA [None]
  - PAIN IN EXTREMITY [None]
